FAERS Safety Report 16907053 (Version 1)
Quarter: 2019Q4

REPORT INFORMATION
  Report Type: Spontaneous
  Country: US (occurrence: US)
  Receive Date: 20191011
  Receipt Date: 20191011
  Transmission Date: 20200122
  Serious: No
  Sender: FDA-Public Use
  Company Number: US-TEVA-2019-US-1122645

PATIENT
  Age: 70 Year
  Sex: Female

DRUGS (1)
  1. BISOPROLOL FURAMATE [Suspect]
     Active Substance: BISOPROLOL FUMARATE
     Indication: CARDIAC DISORDER
     Route: 065

REACTIONS (3)
  - Insomnia [Unknown]
  - Wheezing [Unknown]
  - Product substitution issue [Unknown]
